FAERS Safety Report 18552424 (Version 1)
Quarter: 2020Q4

REPORT INFORMATION
  Report Type: Spontaneous
  Country: US (occurrence: US)
  Receive Date: 20201127
  Receipt Date: 20201127
  Transmission Date: 20210114
  Serious: No
  Sender: FDA-Public Use
  Company Number: US-TEVA-2020-US-1853219

PATIENT
  Age: 73 Year
  Sex: Female
  Weight: 54.43 kg

DRUGS (2)
  1. ALPRAZOLAM. [Suspect]
     Active Substance: ALPRAZOLAM
     Indication: PANIC ATTACK
     Dosage: 1 MG,UP TO 3 TABLETS BY MOUTH DAILY AS DIRECTED
     Route: 048
     Dates: start: 20201117
  2. ALPRAZOLAM. [Suspect]
     Active Substance: ALPRAZOLAM
     Indication: ANXIETY

REACTIONS (1)
  - Somnolence [Unknown]
